FAERS Safety Report 10084628 (Version 5)
Quarter: 2019Q3

REPORT INFORMATION
  Report Type: Spontaneous
  Country: US (occurrence: US)
  Receive Date: 20140417
  Receipt Date: 20190731
  Transmission Date: 20191004
  Serious: Yes (Other)
  Sender: FDA-Public Use
  Company Number: US-PFIZER INC-2014104168

PATIENT
  Age: 40 Year
  Sex: Male
  Weight: 38 kg

DRUGS (2)
  1. LYRICA [Suspect]
     Active Substance: PREGABALIN
     Indication: PAIN IN EXTREMITY
     Dosage: 50 MG, 1X/DAY  (ONE AT BEDTIME FOR THE FIRST 7 DAYS)
     Dates: start: 20190711, end: 20190717
  2. LYRICA [Suspect]
     Active Substance: PREGABALIN
     Indication: NERVE INJURY
     Dosage: 50 MG, 2X/DAY [50 MG BID X1 WK]
     Dates: start: 20190718, end: 20190724

REACTIONS (3)
  - Back disorder [Unknown]
  - Arthropathy [Unknown]
  - Pain [Unknown]

NARRATIVE: CASE EVENT DATE: 2019
